FAERS Safety Report 5837531-3 (Version None)
Quarter: 2008Q3

REPORT INFORMATION
  Report Type: 
  Country: None (occurrence: None)
  Receive Date: 20080807
  Receipt Date: 20080726
  Transmission Date: 20090109
  Serious: Yes (Other)
  Sender: FDA-Public Use
  Company Number: US-PFIZER INC-2008063130

PATIENT
  Sex: Female
  Weight: 100 kg

DRUGS (2)
  1. CHANTIX [Suspect]
     Indication: SMOKING CESSATION THERAPY
  2. WARFARIN SODIUM [Concomitant]
     Indication: THROMBOSIS

REACTIONS (5)
  - ABDOMINAL PAIN UPPER [None]
  - ABNORMAL DREAMS [None]
  - NAUSEA [None]
  - PELVIC INFECTION [None]
  - VOMITING [None]
